FAERS Safety Report 12907239 (Version 2)
Quarter: 2016Q4

REPORT INFORMATION
  Report Type: Spontaneous
  Country: JP (occurrence: JP)
  Receive Date: 20161103
  Receipt Date: 20161207
  Transmission Date: 20170207
  Serious: Yes (Hospitalization)
  Sender: FDA-Public Use
  Company Number: PHJP2016JP026431

PATIENT
  Age: 59 Year
  Sex: Male
  Weight: 66 kg

DRUGS (8)
  1. NORVASC [Suspect]
     Active Substance: AMLODIPINE BESYLATE
     Indication: HYPERTENSION
     Dosage: 2.5 MG, QD
     Route: 048
     Dates: start: 2009
  2. AMOXAN [Suspect]
     Active Substance: AMOXAPINE
     Indication: PANIC DISORDER
     Dosage: 150 MG, QD
     Route: 048
     Dates: start: 2009
  3. DEPAS [Suspect]
     Active Substance: ETIZOLAM
     Indication: PANIC DISORDER
     Dosage: 1 MG, TID
     Route: 048
     Dates: start: 2009
  4. GRANDAXIN [Suspect]
     Active Substance: TOFISOPAM
     Indication: PANIC DISORDER
     Dosage: 50 MG, TID
     Route: 048
     Dates: start: 2009
  5. HYPEN [Suspect]
     Active Substance: ETODOLAC
     Indication: SPINAL OSTEOARTHRITIS
     Dosage: 200 MG, TID
     Route: 048
     Dates: start: 2009, end: 20160707
  6. DIOVAN [Suspect]
     Active Substance: VALSARTAN
     Indication: HYPERTENSION
     Dosage: 40 MG, QD
     Route: 048
     Dates: start: 2009
  7. REFLEX [Suspect]
     Active Substance: MIRTAZAPINE
     Indication: PANIC DISORDER
     Dosage: 45 MG, QD
     Route: 048
     Dates: start: 2009
  8. GLIVEC [Suspect]
     Active Substance: IMATINIB MESYLATE
     Indication: CHRONIC MYELOID LEUKAEMIA
     Dosage: 300-400 MG, QD
     Route: 048
     Dates: start: 20090129, end: 20160629

REACTIONS (4)
  - Neutrophil count decreased [Unknown]
  - Anaemia [Unknown]
  - Acute promyelocytic leukaemia [Recovering/Resolving]
  - Nasopharyngitis [Recovering/Resolving]

NARRATIVE: CASE EVENT DATE: 20160517
